FAERS Safety Report 6245920-0 (Version None)
Quarter: 2009Q2

REPORT INFORMATION
  Report Type: 
  Country: None (occurrence: None)
  Receive Date: 20090626
  Receipt Date: 20080711
  Transmission Date: 20091009
  Serious: No
  Sender: FDA-Public Use
  Company Number: A0737491A

PATIENT
  Age: 40 Year
  Sex: Female

DRUGS (7)
  1. IMITREX [Suspect]
     Indication: HEADACHE
     Dosage: 50MG AS REQUIRED
     Route: 048
     Dates: start: 20080601
  2. TYLENOL W/ CODEINE NO. 3 [Concomitant]
  3. PHENERGAN [Concomitant]
  4. SEROQUEL [Concomitant]
  5. DEPAKOTE [Concomitant]
  6. CLONAZEPAM [Concomitant]
  7. LORAZEPAM [Concomitant]

REACTIONS (1)
  - DRUG INEFFECTIVE [None]
